FAERS Safety Report 23567023 (Version 1)
Quarter: 2024Q1

REPORT INFORMATION
  Report Type: Spontaneous
  Country: US (occurrence: US)
  Receive Date: 20240226
  Receipt Date: 20240226
  Transmission Date: 20240410
  Serious: Yes (Other)
  Sender: FDA-Public Use
  Company Number: US-BAYER-2024A025059

PATIENT
  Age: 10 Year
  Sex: Male

DRUGS (1)
  1. KOVALTRY [Suspect]
     Active Substance: ANTIHEMOPHILIC FACTOR, HUMAN RECOMBINANT
     Dosage: 2115 UNITS

REACTIONS (3)
  - Traumatic haemorrhage [None]
  - Limb injury [None]
  - Animal bite [None]

NARRATIVE: CASE EVENT DATE: 20240131
